FAERS Safety Report 10244370 (Version 1)
Quarter: 2014Q1

REPORT INFORMATION
  Report Type: Spontaneous
  Country: US (occurrence: None)
  Receive Date: 20140306
  Receipt Date: 20140306
  Transmission Date: 20141002
  Serious: Yes (Hospitalization)
  Sender: FDA-Public Use
  Company Number: 163-21880-13101133

PATIENT
  Age: 67 Year
  Sex: Male
  Weight: 136 kg

DRUGS (2)
  1. REVLIMID (LENALIDOMIDE) (CAPSULES) [Suspect]
     Indication: PLASMA CELL MYELOMA
     Dosage: 1 IN 1 D
     Route: 048
     Dates: start: 201005
  2. COUMADIN (WARFARIN SODIUM) [Concomitant]

REACTIONS (4)
  - Infection [None]
  - Nasopharyngitis [None]
  - Blood disorder [None]
  - Sinus congestion [None]
